FAERS Safety Report 11372869 (Version 1)
Quarter: 2015Q3

REPORT INFORMATION
  Report Type: Spontaneous
  Country: US (occurrence: US)
  Receive Date: 20150811
  Receipt Date: 20150811
  Transmission Date: 20151125
  Serious: No
  Sender: FDA-Public Use
  Company Number: US-ELI_LILLY_AND_COMPANY-US201111008502

PATIENT
  Sex: Male

DRUGS (3)
  1. CIALIS [Suspect]
     Active Substance: TADALAFIL
  2. CELEBREX [Concomitant]
     Active Substance: CELECOXIB
  3. VIAGRA [Concomitant]
     Active Substance: SILDENAFIL CITRATE

REACTIONS (5)
  - Hypoaesthesia [Unknown]
  - Tremor [Unknown]
  - Discomfort [Unknown]
  - Nasopharyngitis [Unknown]
  - Mental impairment [Unknown]
